FAERS Safety Report 7388540-7 (Version None)
Quarter: 2011Q2

REPORT INFORMATION
  Report Type: 
  Country: None (occurrence: None)
  Receive Date: 20110401
  Receipt Date: 20110328
  Transmission Date: 20111010
  Serious: Yes (Other)
  Sender: FDA-Public Use
  Company Number: US-PFIZER INC-2011068935

PATIENT
  Sex: Female
  Weight: 86.168 kg

DRUGS (1)
  1. ADVIL LIQUI-GELS [Suspect]
     Indication: PAIN
     Dosage: 200 MG, 1X/DAY
     Route: 048

REACTIONS (4)
  - NASOPHARYNGITIS [None]
  - ADVERSE REACTION [None]
  - MOOD ALTERED [None]
  - RASH [None]
